FAERS Safety Report 15763439 (Version 2)
Quarter: 2019Q1

REPORT INFORMATION
  Report Type: Report from Study
  Country: FR (occurrence: FR)
  Receive Date: 20181227
  Receipt Date: 20190321
  Transmission Date: 20190417
  Serious: Yes (Death, Other)
  Sender: FDA-Public Use
  Company Number: FR-BRISTOL-MYERS SQUIBB COMPANY-BMS-2018-113665

PATIENT
  Age: 70 Year
  Sex: Male

DRUGS (1)
  1. NIVOLUMAB [Suspect]
     Active Substance: NIVOLUMAB
     Indication: LUNG NEOPLASM MALIGNANT
     Dosage: 240 MG, UNK
     Route: 042
     Dates: start: 20170630

REACTIONS (2)
  - Malignant neoplasm progression [Fatal]
  - Blindness [Unknown]

NARRATIVE: CASE EVENT DATE: 20171226
